FAERS Safety Report 7330656-5 (Version None)
Quarter: 2011Q1

REPORT INFORMATION
  Report Type: 
  Country: None (occurrence: None)
  Receive Date: 20110225
  Receipt Date: 20110225
  Transmission Date: 20110831
  Serious: Yes (Other)
  Sender: FDA-Public Use
  Company Number: None

PATIENT
  Age: 56 Year
  Sex: Female
  Weight: 62.5964 kg

DRUGS (1)
  1. RECLAST [Suspect]
     Indication: OSTEOPOROSIS
     Dosage: IV
     Route: 042
     Dates: start: 20110208, end: 20110208

REACTIONS (4)
  - RASH [None]
  - PYREXIA [None]
  - RHEUMATOID ARTHRITIS [None]
  - URTICARIA [None]
